FAERS Safety Report 9417018 (Version 2)
Quarter: 2013Q3

REPORT INFORMATION
  Report Type: Spontaneous
  Country: US (occurrence: None)
  Receive Date: 20130722
  Receipt Date: 20130801
  Transmission Date: 20140515
  Serious: Yes (Hospitalization)
  Sender: FDA-Public Use
  Company Number: 2013P1011925

PATIENT
  Age: 61 Year
  Sex: Female

DRUGS (1)
  1. INFUMORPH [Suspect]
     Indication: SPINAL PAIN
     Route: 037

REACTIONS (3)
  - Overdose [None]
  - Loss of consciousness [None]
  - Encephalopathy [None]
